FAERS Safety Report 25535444 (Version 1)
Quarter: 2025Q3

REPORT INFORMATION
  Report Type: Spontaneous
  Country: US (occurrence: US)
  Receive Date: 20250709
  Receipt Date: 20250709
  Transmission Date: 20251020
  Serious: Yes (Other)
  Sender: AMGEN
  Company Number: US-AMGEN-USASP2025130245

PATIENT
  Age: 16 Year
  Weight: 59.6 kg

DRUGS (4)
  1. RITUXIMAB [Suspect]
     Active Substance: RITUXIMAB
     Indication: Transplant rejection
     Route: 065
  2. BORTEZOMIB [Concomitant]
     Active Substance: BORTEZOMIB
  3. Immunoglobulin [Concomitant]
     Route: 040
  4. TOLODODEKIN ALFA [Concomitant]
     Active Substance: TOLODODEKIN ALFA

REACTIONS (4)
  - Heart transplant rejection [Unknown]
  - Oropharyngeal discomfort [Unknown]
  - Off label use [Unknown]
  - COVID-19 [Unknown]
